FAERS Safety Report 4909067-5 (Version None)
Quarter: 2006Q1

REPORT INFORMATION
  Report Type: 
  Country: None (occurrence: None)
  Receive Date: 20060213
  Receipt Date: 20060123
  Transmission Date: 20060701
  Serious: Yes (Hospitalization)
  Sender: FDA-Public Use
  Company Number: SE-ABBOTT-06P-150-0323207-00

PATIENT
  Age: 65 Year
  Sex: Male

DRUGS (6)
  1. KLACID [Suspect]
     Indication: DUODENITIS
     Route: 048
     Dates: start: 20051007, end: 20051102
  2. KLACID [Suspect]
     Indication: ULCER
  3. ESOMEPRAZOLE [Suspect]
     Indication: DUODENITIS
     Route: 048
     Dates: start: 20051007, end: 20051102
  4. ESOMEPRAZOLE [Suspect]
     Indication: ULCER
  5. AMOXICILLIN TRIHYDRATE [Suspect]
     Indication: DUODENITIS
     Route: 048
     Dates: start: 20051007, end: 20051102
  6. AMOXICILLIN TRIHYDRATE [Suspect]
     Indication: ULCER

REACTIONS (4)
  - CHOLESTASIS [None]
  - HEPATIC STEATOSIS [None]
  - HEPATOMEGALY [None]
  - JAUNDICE [None]
